FAERS Safety Report 14675129 (Version 1)
Quarter: 2018Q1

REPORT INFORMATION
  Report Type: Spontaneous
  Country: HK (occurrence: HK)
  Receive Date: 20180323
  Receipt Date: 20180323
  Transmission Date: 20180509
  Serious: Yes (Hospitalization)
  Sender: FDA-Public Use
  Company Number: HK-SHENZHEN TECHDOW PHARMACEUTICAL CO. LTD-HK-2018TEC0000013

PATIENT
  Age: 55 Year
  Sex: Female

DRUGS (2)
  1. HEPARIN SODIUM INJECTION USP, PRESERVATIVE FREE [Suspect]
     Active Substance: HEPARIN SODIUM
     Indication: EXTRACORPOREAL MEMBRANE OXYGENATION
  2. HEPARIN SODIUM INJECTION USP, PRESERVATIVE FREE [Suspect]
     Active Substance: HEPARIN SODIUM
     Indication: PNEUMONIA
     Dosage: UNK

REACTIONS (1)
  - Abdominal wall haematoma [Recovered/Resolved]
